FAERS Safety Report 26202462 (Version 1)
Quarter: 2025Q4

REPORT INFORMATION
  Report Type: Spontaneous
  Country: CN (occurrence: CN)
  Receive Date: 20251226
  Receipt Date: 20251226
  Transmission Date: 20260117
  Serious: Yes (Other)
  Sender: Haleon PLC
  Company Number: CN-HALEON-2280775

PATIENT
  Age: 31 Year
  Sex: Male
  Weight: 82 kg

DRUGS (1)
  1. IBUPROFEN [Suspect]
     Active Substance: IBUPROFEN
     Indication: Upper respiratory tract infection
     Dosage: SUSTAINED-RELEASE CAPSULES
     Dates: start: 20251122, end: 20251123

REACTIONS (6)
  - Dermatitis [Unknown]
  - Rash [Unknown]
  - Skin disorder [Unknown]
  - Pruritus [Unknown]
  - Skin lesion [Unknown]
  - Papule [Unknown]

NARRATIVE: CASE EVENT DATE: 20251123
